FAERS Safety Report 6681458-4 (Version None)
Quarter: 2010Q2

REPORT INFORMATION
  Report Type: 
  Country: None (occurrence: None)
  Receive Date: 20100414
  Receipt Date: 20100326
  Transmission Date: 20101027
  Serious: Yes (Hospitalization, Disabling)
  Sender: FDA-Public Use
  Company Number: ES-BAYER-201021571GPV

PATIENT
  Age: 70 Year
  Sex: Male

DRUGS (11)
  1. SORAFENIB [Suspect]
     Indication: COLORECTAL CANCER
     Dosage: TOTAL DAILY DOSE: 800 MG  UNIT DOSE: 200 MG
     Route: 048
     Dates: start: 20100118
  2. OXALIPLATIN [Suspect]
     Indication: COLORECTAL CANCER
     Dosage: 150, 120 MG
     Route: 042
     Dates: start: 20100118, end: 20100310
  3. LEUCOVORIN CALCIUM [Suspect]
     Indication: COLORECTAL CANCER
     Route: 042
     Dates: start: 20100118, end: 20100310
  4. FLUOROURACIL [Suspect]
     Indication: COLORECTAL CANCER
     Route: 040
     Dates: start: 20100118, end: 20100310
  5. FLUOROURACIL [Suspect]
     Dosage: EVERY TWO WEEKS FOR THREE DAYS
     Route: 041
     Dates: start: 20100118, end: 20100312
  6. ASPIRIN [Concomitant]
     Indication: HYPERTENSION
     Dates: start: 20060101
  7. ORAL ANTIDIABETIC [Concomitant]
     Indication: DIABETES MELLITUS
     Route: 048
     Dates: start: 19950101
  8. INSULINE [Concomitant]
     Indication: DIABETES MELLITUS
     Dates: start: 20060101
  9. OMEPRAZOLE [Concomitant]
     Indication: PROPHYLAXIS
     Route: 048
     Dates: start: 20100101
  10. TETRAHYDROZOLINE [Concomitant]
     Indication: RETINOPATHY
     Route: 047
  11. CANDESARTAN CILEXETIL [Concomitant]
     Indication: HYPERTENSION

REACTIONS (2)
  - CEREBRAL ISCHAEMIA [None]
  - MYOCARDIAL ISCHAEMIA [None]
